FAERS Safety Report 6584945-2 (Version None)
Quarter: 2010Q1

REPORT INFORMATION
  Report Type: 
  Country: None (occurrence: None)
  Receive Date: 20100217
  Receipt Date: 20100209
  Transmission Date: 20100710
  Serious: Yes (Other)
  Sender: FDA-Public Use
  Company Number: US-ALEXION-A200901055

PATIENT
  Sex: Male

DRUGS (6)
  1. SOLIRIS [Suspect]
     Indication: PAROXYSMAL NOCTURNAL HAEMOGLOBINURIA
     Dosage: UNK
     Route: 042
     Dates: start: 20091005
  2. SOLIRIS [Suspect]
     Dosage: 9TH DOSE
     Route: 042
     Dates: start: 20091130
  3. SOLIRIS [Suspect]
     Dosage: UNK
  4. PREDNISONE [Suspect]
     Dosage: 100 MG, QD
     Dates: start: 20090101, end: 20090101
  5. PREDNISONE [Suspect]
     Dosage: 30 MG, QD
     Dates: start: 20090101
  6. ANADROL [Concomitant]
     Indication: BLOOD LACTATE DEHYDROGENASE INCREASED

REACTIONS (4)
  - BACK PAIN [None]
  - BLOOD LACTATE DEHYDROGENASE INCREASED [None]
  - HAEMOGLOBINURIA [None]
  - SPINAL COMPRESSION FRACTURE [None]
